FAERS Safety Report 20631094 (Version 1)
Quarter: 2022Q1

REPORT INFORMATION
  Report Type: Spontaneous
  Country: US (occurrence: US)
  Receive Date: 20220324
  Receipt Date: 20220324
  Transmission Date: 20220423
  Serious: Yes (Other)
  Sender: FDA-Public Use
  Company Number: US-AUROBINDO-AUR-APL-2021-048411

PATIENT
  Sex: Female

DRUGS (1)
  1. FLUOXETINE HYDROCHLORIDE [Suspect]
     Active Substance: FLUOXETINE HYDROCHLORIDE
     Indication: Anxiety
     Dosage: UNK
     Route: 065

REACTIONS (11)
  - Cataract [Unknown]
  - Nausea [Unknown]
  - Dizziness [Unknown]
  - Irritability [Unknown]
  - Insomnia [Unknown]
  - Eye irritation [Unknown]
  - Hyperhidrosis [Unknown]
  - Feeding disorder [Unknown]
  - Dry mouth [Unknown]
  - Constipation [Unknown]
  - Dry eye [Unknown]
